FAERS Safety Report 9000636 (Version 1)
Quarter: 2013Q1

REPORT INFORMATION
  Report Type: Spontaneous
  Country: US (occurrence: US)
  Receive Date: 20130107
  Receipt Date: 20130107
  Transmission Date: 20140127
  Serious: Yes (Hospitalization)
  Sender: FDA-Public Use
  Company Number: US-BAYER-2013-000474

PATIENT
  Age: 22 Year
  Sex: Female

DRUGS (7)
  1. YASMIN [Suspect]
     Indication: CONTRACEPTION
  2. METRONIDAZOLE [Concomitant]
  3. BELLADONNA AND PHENOBARBITONE [Concomitant]
  4. NORCO [Concomitant]
  5. ARIXTRA [Concomitant]
  6. ARIXTRA [Concomitant]
  7. MOTRIN [Concomitant]

REACTIONS (2)
  - Pulmonary embolism [None]
  - Deep vein thrombosis [None]
